FAERS Safety Report 11237934 (Version 1)
Quarter: 2015Q3

REPORT INFORMATION
  Report Type: Spontaneous
  Country: US (occurrence: US)
  Receive Date: 20150703
  Receipt Date: 20150703
  Transmission Date: 20151125
  Serious: Yes (Hospitalization, Other)
  Sender: FDA-Public Use
  Company Number: US-JNJFOC-20150619264

PATIENT
  Age: 19 Year
  Sex: Male

DRUGS (2)
  1. ZYPREXA [Concomitant]
     Active Substance: OLANZAPINE
     Indication: PRODUCT USED FOR UNKNOWN INDICATION
     Route: 065
  2. INVEGA SUSTENNA [Suspect]
     Active Substance: PALIPERIDONE PALMITATE
     Indication: SCHIZOAFFECTIVE DISORDER
     Route: 030
     Dates: start: 20150316

REACTIONS (5)
  - Physical assault [Unknown]
  - Irritability [Unknown]
  - Neuroleptic malignant syndrome [Unknown]
  - Hospitalisation [Unknown]
  - Imprisonment [Recovered/Resolved]
